FAERS Safety Report 7152291-4 (Version None)
Quarter: 2010Q4

REPORT INFORMATION
  Report Type: 
  Country: None (occurrence: None)
  Receive Date: 20101209
  Receipt Date: 20101209
  Transmission Date: 20110411
  Serious: Yes (Disabling)
  Sender: FDA-Public Use
  Company Number: None

PATIENT
  Sex: Female

DRUGS (1)
  1. DESMOPRESSIN ACETATE [Suspect]
     Indication: DIABETES INSIPIDUS
     Dosage: 1/2 TABLET EVERY DAY PO A FEW DAYS
     Route: 048
     Dates: start: 20101120, end: 20101123

REACTIONS (3)
  - DEHYDRATION [None]
  - DRY MOUTH [None]
  - INCONTINENCE [None]
